FAERS Safety Report 17128697 (Version 1)
Quarter: 2019Q4

REPORT INFORMATION
  Report Type: Spontaneous
  Country: US (occurrence: US)
  Receive Date: 20191206
  Receipt Date: 20191206
  Transmission Date: 20200122
  Serious: No
  Sender: FDA-Public Use
  Company Number: None

PATIENT
  Age: 58 Year
  Sex: Male
  Weight: 112.14 kg

DRUGS (3)
  1. RITUXIMAB. [Suspect]
     Active Substance: RITUXIMAB
     Indication: CHRONIC LYMPHOCYTIC LEUKAEMIA
     Dosage: ?          OTHER FREQUENCY:X1;?
     Route: 042
  2. DIPHENHYDRAMINE 50MG [Concomitant]
     Active Substance: DIPHENHYDRAMINE
     Dates: start: 20191206, end: 20191206
  3. ACETAMINOPHEN. [Concomitant]
     Active Substance: ACETAMINOPHEN
     Dates: start: 20191206, end: 20191206

REACTIONS (3)
  - Infusion related reaction [None]
  - Flushing [None]
  - Tremor [None]

NARRATIVE: CASE EVENT DATE: 20191206
